FAERS Safety Report 12231743 (Version 1)
Quarter: 2016Q2

REPORT INFORMATION
  Report Type: Spontaneous
  Country: TR (occurrence: TR)
  Receive Date: 20160401
  Receipt Date: 20160401
  Transmission Date: 20160815
  Serious: Yes (Death)
  Sender: FDA-Public Use
  Company Number: TR-WATSON-2016-06674

PATIENT
  Age: 23 Year
  Sex: Female

DRUGS (2)
  1. SOTALOL (UNKNOWN) [Suspect]
     Active Substance: SOTALOL
     Indication: COMPLETED SUICIDE
     Dosage: UNK, EMPTY BOX OF SOTALOL 20 TABLETS
     Route: 065
  2. FLECAINIDE (UNKNOWN) [Suspect]
     Active Substance: FLECAINIDE
     Indication: COMPLETED SUICIDE
     Dosage: UNK, EMPTY BOX OF FLECAINIDE 30 TABLETS
     Route: 065

REACTIONS (5)
  - Toxicity to various agents [Fatal]
  - Cardiac arrest [Fatal]
  - Overdose [Fatal]
  - Coma [Fatal]
  - Completed suicide [Fatal]
